FAERS Safety Report 7660167-9 (Version None)
Quarter: 2011Q3

REPORT INFORMATION
  Report Type: 
  Country: None (occurrence: None)
  Receive Date: 20110805
  Receipt Date: 20110802
  Transmission Date: 20111222
  Serious: Yes (Death, Other)
  Sender: FDA-Public Use
  Company Number: PHHY2011SG69958

PATIENT
  Age: 38 Year
  Sex: Male

DRUGS (3)
  1. HYDROCORTISONE [Concomitant]
     Indication: IMMUNOSUPPRESSION
     Dosage: UNK
  2. SIMULECT [Suspect]
     Indication: IMMUNOSUPPRESSION
     Dosage: UNK
  3. MYCOPHENOLATE MOFETIL [Concomitant]
     Indication: IMMUNOSUPPRESSION
     Dosage: UNK

REACTIONS (8)
  - BACTERIAL SEPSIS [None]
  - ILEAL PERFORATION [None]
  - STENOTROPHOMONAS INFECTION [None]
  - FUNGAEMIA [None]
  - ABDOMINAL ABSCESS [None]
  - WOUND SECRETION [None]
  - SYSTEMIC CANDIDA [None]
  - TRICHOSPORON INFECTION [None]
